FAERS Safety Report 8014712-4 (Version None)
Quarter: 2011Q4

REPORT INFORMATION
  Report Type: 
  Country: None (occurrence: None)
  Receive Date: 20111229
  Receipt Date: 20111216
  Transmission Date: 20120403
  Serious: Yes (Other)
  Sender: FDA-Public Use
  Company Number: JP-SANOFI-AVENTIS-2011SA081948

PATIENT
  Age: 46 Year
  Sex: Female

DRUGS (8)
  1. TAXOTERE [Suspect]
     Dosage: 20 DRIPS PER MIN
     Route: 065
     Dates: start: 20100127
  2. DEXAMETHASONE SODIUM PHOSPHATE [Concomitant]
     Indication: PROPHYLAXIS
  3. FLUOROURACIL [Concomitant]
  4. CYCLOPHOSPHAMIDE [Concomitant]
  5. TAXOTERE [Suspect]
     Dosage: 20 DRIPS PER MIN
     Route: 065
     Dates: start: 20091216
  6. TAXOTERE [Suspect]
     Dosage: 20 DRIPS PER MIN
     Route: 065
     Dates: start: 20100106
  7. EPIRUBICIN [Concomitant]
  8. TAXOTERE [Suspect]
     Route: 065
     Dates: start: 20091125

REACTIONS (3)
  - HYPERSENSITIVITY [None]
  - DYSPNOEA [None]
  - FLUSHING [None]
